FAERS Safety Report 18803117 (Version 5)
Quarter: 2021Q4

REPORT INFORMATION
  Report Type: Report from Study
  Country: US (occurrence: US)
  Receive Date: 20210129
  Receipt Date: 20211223
  Transmission Date: 20220303
  Serious: Yes (Hospitalization)
  Sender: FDA-Public Use
  Company Number: US-ACADIA PHARMACEUTICALS INC.-ACA-2021-PIM-000029

PATIENT
  Sex: Female

DRUGS (10)
  1. NUPLAZID [Suspect]
     Active Substance: PIMAVANSERIN TARTRATE
     Indication: Parkinson^s disease
     Dosage: 34 MILLIGRAM, QD
     Route: 048
  2. NUPLAZID [Suspect]
     Active Substance: PIMAVANSERIN TARTRATE
     Indication: Hallucination
     Dosage: 34 MILLIGRAM, QD
     Route: 048
  3. NUPLAZID [Suspect]
     Active Substance: PIMAVANSERIN TARTRATE
     Indication: Delusion
  4. NUPLAZID [Suspect]
     Active Substance: PIMAVANSERIN TARTRATE
     Indication: Parkinson^s disease psychosis
  5. MYRBETRIQ [Concomitant]
     Active Substance: MIRABEGRON
     Dosage: TABLET 50 MILLIGRAM
  6. QUETIAPINE FUMARATE [Concomitant]
     Active Substance: QUETIAPINE FUMARATE
     Dosage: 400 MILLIGRAM
  7. RIVASTIGMINE [Concomitant]
     Active Substance: RIVASTIGMINE
     Dosage: 13.3MG/2
  8. RYTARY [Concomitant]
     Active Substance: CARBIDOPA\LEVODOPA
     Dosage: 23.75-95MG
  9. SERTRALINE HYDROCHLORIDE [Concomitant]
     Active Substance: SERTRALINE HYDROCHLORIDE
     Dosage: 100 MILLIGRAM
  10. TOVIAZ [Concomitant]
     Active Substance: FESOTERODINE FUMARATE
     Dosage: TABLET 4 MILLIGRAM

REACTIONS (18)
  - Visual impairment [Not Recovered/Not Resolved]
  - Somnolence [Not Recovered/Not Resolved]
  - Hallucination [Not Recovered/Not Resolved]
  - Abdominal discomfort [Not Recovered/Not Resolved]
  - Vomiting [Not Recovered/Not Resolved]
  - Product dose omission issue [Recovered/Resolved]
  - Refusal of treatment by patient [Unknown]
  - Negative thoughts [Unknown]
  - Paranoia [Not Recovered/Not Resolved]
  - Condition aggravated [Not Recovered/Not Resolved]
  - Delusion [Not Recovered/Not Resolved]
  - Personality change [Not Recovered/Not Resolved]
  - Delirium [Not Recovered/Not Resolved]
  - Insomnia [Not Recovered/Not Resolved]
  - Hallucination [Not Recovered/Not Resolved]
  - Therapeutic product effect decreased [Not Recovered/Not Resolved]
  - Hallucination [Not Recovered/Not Resolved]
  - Aggression [Not Recovered/Not Resolved]
